FAERS Safety Report 21702271 (Version 2)
Quarter: 2022Q4

REPORT INFORMATION
  Report Type: Spontaneous
  Country: US (occurrence: US)
  Receive Date: 20221208
  Receipt Date: 20221212
  Transmission Date: 20230113
  Serious: Yes (Death)
  Sender: FDA-Public Use
  Company Number: US-JNJFOC-20221207551

PATIENT
  Age: 15 Year
  Sex: Female

DRUGS (1)
  1. BENADRYL [Suspect]
     Active Substance: DIPHENHYDRAMINE HYDROCHLORIDE
     Indication: Product used for unknown indication
     Dosage: ACCESS TO A BOTTLE AND SEVERAL BLISTER PACKS OF BENADRYL, TEENS TOOK AN UNDETERMINED AMOUNT OF WHAT
     Route: 065

REACTIONS (4)
  - Loss of consciousness [Fatal]
  - Unresponsive to stimuli [Fatal]
  - Illness [Fatal]
  - Overdose [Fatal]

NARRATIVE: CASE EVENT DATE: 20221101
